FAERS Safety Report 15464915 (Version 1)
Quarter: 2018Q4

REPORT INFORMATION
  Report Type: Spontaneous
  Country: US (occurrence: US)
  Receive Date: 20181004
  Receipt Date: 20181004
  Transmission Date: 20190204
  Serious: No
  Sender: FDA-Public Use
  Company Number: US-PFIZER INC-2018396012

PATIENT
  Age: 81 Year
  Sex: Female

DRUGS (20)
  1. REVLIMID [Suspect]
     Active Substance: LENALIDOMIDE
     Dosage: 10 MG, 1X/DAY (1 IN 1 D)
     Route: 048
     Dates: start: 20140312
  2. REVLIMID [Suspect]
     Active Substance: LENALIDOMIDE
     Dosage: 5 MG, 1X/DAY (1 IN 1 D)
     Route: 048
     Dates: start: 201403
  3. LIPITOR [Concomitant]
     Active Substance: ATORVASTATIN CALCIUM
     Dosage: UNK
     Route: 065
  4. LYRICA [Suspect]
     Active Substance: PREGABALIN
     Indication: NEUROPATHY PERIPHERAL
     Dosage: UNK
     Route: 065
  5. PREVACID [Concomitant]
     Active Substance: LANSOPRAZOLE
     Dosage: UNK
     Route: 048
  6. VALSARTAN. [Concomitant]
     Active Substance: VALSARTAN
     Dosage: UNK
     Route: 065
  7. VITAMIN D3 [Concomitant]
     Active Substance: CHOLECALCIFEROL
     Dosage: UNK
     Route: 065
  8. REVLIMID [Suspect]
     Active Substance: LENALIDOMIDE
     Dosage: 5 MG, DAILY (1 IN 1 D)
     Route: 048
  9. DANAZOL. [Concomitant]
     Active Substance: DANAZOL
     Dosage: UNK
     Route: 065
  10. GAS-X [Concomitant]
     Active Substance: DIMETHICONE
     Dosage: UNK
     Route: 065
  11. METRONIDAZOLE. [Concomitant]
     Active Substance: METRONIDAZOLE
     Dosage: UNK
     Route: 065
  12. ARANESP [Concomitant]
     Active Substance: DARBEPOETIN ALFA
     Indication: RED BLOOD CELL COUNT DECREASED
     Dosage: UNK
     Route: 065
  13. REVLIMID [Suspect]
     Active Substance: LENALIDOMIDE
     Dosage: 5 MG, UNK (5 MG, 1 IN 2 D)
     Route: 048
     Dates: start: 201512
  14. ALEVE [Concomitant]
     Active Substance: NAPROXEN SODIUM
     Dosage: UNK
     Route: 065
  15. PREDNISONE. [Concomitant]
     Active Substance: PREDNISONE
     Dosage: UNK, (REDUCED DOSE)
     Route: 065
  16. REVLIMID [Suspect]
     Active Substance: LENALIDOMIDE
     Dosage: 2.5- 5 MILLIGRAM (1 IN 1 D)
     Route: 048
     Dates: start: 201505
  17. NEXIUM [ESOMEPRAZOLE SODIUM] [Concomitant]
     Dosage: UNK
     Route: 065
  18. FOLIC ACID. [Concomitant]
     Active Substance: FOLIC ACID
     Dosage: UNK
     Route: 065
  19. IMODIUM A-D [Concomitant]
     Active Substance: LOPERAMIDE HYDROCHLORIDE
     Dosage: UNK,(1 MG/7.5)
     Route: 065
  20. REVLIMID [Suspect]
     Active Substance: LENALIDOMIDE
     Indication: MYELODYSPLASTIC SYNDROME
     Dosage: 10 MG, 1X/DAY (1 IN 1 D)
     Route: 048
     Dates: start: 201402

REACTIONS (3)
  - Pain in extremity [Unknown]
  - Drug ineffective [Unknown]
  - Swelling [Unknown]

NARRATIVE: CASE EVENT DATE: 201801
